FAERS Safety Report 14557209 (Version 2)
Quarter: 2018Q2

REPORT INFORMATION
  Report Type: Spontaneous
  Country: US (occurrence: US)
  Receive Date: 20180221
  Receipt Date: 20180419
  Transmission Date: 20180711
  Serious: No
  Sender: FDA-Public Use
  Company Number: US-ASTRAZENECA-2018SE21476

PATIENT
  Sex: Female
  Weight: 72.6 kg

DRUGS (2)
  1. TUDORZA PRESSAIR [Suspect]
     Active Substance: ACLIDINIUM BROMIDE
     Indication: CHRONIC OBSTRUCTIVE PULMONARY DISEASE
     Route: 055
     Dates: start: 2017
  2. OXYGEN. [Concomitant]
     Active Substance: OXYGEN
     Dosage: 2L CONTINUOUSLY WITH INCREASE TO 3 OR 4 LITERS AS NEEDED WITH EXERTION

REACTIONS (3)
  - Lung disorder [Not Recovered/Not Resolved]
  - Device issue [Unknown]
  - Device failure [Unknown]
